FAERS Safety Report 11766399 (Version 2)
Quarter: 2016Q1

REPORT INFORMATION
  Report Type: Report from Study
  Country: US (occurrence: US)
  Receive Date: 20151123
  Receipt Date: 20160207
  Transmission Date: 20160525
  Serious: No
  Sender: FDA-Public Use
  Company Number: PHEH2015US024240

PATIENT
  Age: 12 Year
  Sex: Female
  Weight: 54 kg

DRUGS (1)
  1. ILARIS [Suspect]
     Active Substance: CANAKINUMAB
     Indication: FAMILIAL COLD AUTOINFLAMMATORY SYNDROME
     Dosage: 150 MG, Q 8 WEEKS
     Route: 058
     Dates: start: 20151115

REACTIONS (6)
  - Headache [Recovered/Resolved]
  - Sinusitis [Recovered/Resolved]
  - Nasopharyngitis [Unknown]
  - Upper-airway cough syndrome [Recovered/Resolved]
  - Oropharyngeal pain [Recovered/Resolved]
  - Product use issue [Unknown]

NARRATIVE: CASE EVENT DATE: 20150916
